FAERS Safety Report 21791712 (Version 3)
Quarter: 2023Q1

REPORT INFORMATION
  Report Type: Report from Study
  Country: CO (occurrence: CO)
  Receive Date: 20221229
  Receipt Date: 20230331
  Transmission Date: 20230417
  Serious: Yes (Life-Threatening, Hospitalization, Other)
  Sender: FDA-Public Use
  Company Number: CO-ABBVIE-4251116

PATIENT
  Age: 57 Year
  Sex: Female
  Weight: 90 kg

DRUGS (2)
  1. HUMIRA [Suspect]
     Active Substance: ADALIMUMAB
     Indication: Rheumatoid arthritis
     Dosage: FORM STRENGTH: 40 MG
     Route: 058
     Dates: end: 20221130
  2. HUMIRA [Suspect]
     Active Substance: ADALIMUMAB

REACTIONS (17)
  - Vaginal discharge [Recovering/Resolving]
  - Headache [Not Recovered/Not Resolved]
  - Pyrexia [Not Recovered/Not Resolved]
  - Localised infection [Not Recovered/Not Resolved]
  - Immunodeficiency [Unknown]
  - Infection [Unknown]
  - Overweight [Not Recovered/Not Resolved]
  - Vaginal cyst [Not Recovered/Not Resolved]
  - Bacterial infection [Not Recovered/Not Resolved]
  - Gastrointestinal injury [Not Recovered/Not Resolved]
  - Mouth cyst [Not Recovered/Not Resolved]
  - Anal incontinence [Not Recovered/Not Resolved]
  - Loss of personal independence in daily activities [Not Recovered/Not Resolved]
  - Renal injury [Not Recovered/Not Resolved]
  - Dizziness [Not Recovered/Not Resolved]
  - Finger amputation [Not Recovered/Not Resolved]
  - Vulvovaginal discomfort [Not Recovered/Not Resolved]

NARRATIVE: CASE EVENT DATE: 20221201
